FAERS Safety Report 6829970-9 (Version None)
Quarter: 2010Q3

REPORT INFORMATION
  Report Type: 
  Country: None (occurrence: None)
  Receive Date: 20100711
  Receipt Date: 20100412
  Transmission Date: 20110219
  Serious: No
  Sender: FDA-Public Use
  Company Number: US-ALLERGAN-1004754US

PATIENT
  Age: 33 Year
  Sex: Female

DRUGS (1)
  1. LATISSE [Suspect]
     Indication: GROWTH OF EYELASHES
     Dosage: 1 GTT, UNK
     Route: 061
     Dates: start: 20090801, end: 20091201

REACTIONS (4)
  - DRUG ADMINISTRATION ERROR [None]
  - MADAROSIS [None]
  - MILIA [None]
  - OCULAR HYPERAEMIA [None]
